FAERS Safety Report 8776932 (Version 3)
Quarter: 2013Q2

REPORT INFORMATION
  Report Type: Spontaneous
  Country: US (occurrence: US)
  Receive Date: 20120911
  Receipt Date: 20130509
  Transmission Date: 20140414
  Serious: Yes (Hospitalization)
  Sender: FDA-Public Use
  Company Number: US-BAYER-2012-093566

PATIENT
  Age: 38 Year
  Sex: Female
  Weight: 73.47 kg

DRUGS (5)
  1. YASMIN [Suspect]
     Indication: CONTRACEPTION
     Dosage: UNK
     Dates: start: 2002, end: 2006
  2. NAPROSYN [Concomitant]
     Indication: DISCOMFORT
     Dosage: UNK
  3. SULFASALAZINE [Concomitant]
     Dosage: 500 MG, UNK
  4. ALEVE [Concomitant]
     Indication: BACK PAIN
  5. LEVOTHYROXINE [Concomitant]
     Dosage: UNK
     Dates: start: 2006

REACTIONS (14)
  - Thrombophlebitis superficial [None]
  - Injury [None]
  - Limb discomfort [None]
  - Oedema peripheral [None]
  - Pain [None]
  - Emotional distress [None]
  - Activities of daily living impaired [None]
  - Anhedonia [None]
  - Phlebitis [None]
  - Scar [None]
  - Anxiety [None]
  - Pain in extremity [None]
  - Mass [None]
  - Sleep disorder [None]
